FAERS Safety Report 23949448 (Version 2)
Quarter: 2024Q3

REPORT INFORMATION
  Report Type: Spontaneous
  Country: FR (occurrence: FR)
  Receive Date: 20240607
  Receipt Date: 20240702
  Transmission Date: 20241016
  Serious: Yes (Hospitalization)
  Sender: RANBAXY
  Company Number: FR-SUN PHARMACEUTICAL INDUSTRIES LTD-2024RR-450316

PATIENT
  Sex: Female

DRUGS (3)
  1. SUMATRIPTAN [Suspect]
     Active Substance: SUMATRIPTAN
     Indication: Product used for unknown indication
     Dosage: 6 MG/0.5 ML
     Route: 051
     Dates: start: 20240321
  2. AMOXICILLIN [Concomitant]
     Active Substance: AMOXICILLIN
     Indication: Bacterial infection
     Dosage: INFUSION
     Route: 065
  3. AMOXICILLIN [Concomitant]
     Active Substance: AMOXICILLIN
     Indication: Periarthritis
     Dosage: 1 GRAM, TID
     Route: 048

REACTIONS (10)
  - Injection site pain [Unknown]
  - Pyrexia [Unknown]
  - Bacterial infection [Unknown]
  - Injection site swelling [Unknown]
  - Abscess limb [Unknown]
  - Periarthritis [Unknown]
  - Injection site inflammation [Unknown]
  - Hypertension [Unknown]
  - Weight decreased [Unknown]
  - Staphylococcal infection [Unknown]

NARRATIVE: CASE EVENT DATE: 20240321
